FAERS Safety Report 24882287 (Version 3)
Quarter: 2025Q1

REPORT INFORMATION
  Report Type: Spontaneous
  Country: IN (occurrence: IN)
  Receive Date: 20250124
  Receipt Date: 20250220
  Transmission Date: 20250409
  Serious: Yes (Death, Other)
  Sender: ROCHE
  Company Number: IN-ROCHE-10000079424

PATIENT
  Age: 47 Year
  Sex: Female

DRUGS (1)
  1. TECENTRIQ [Suspect]
     Active Substance: ATEZOLIZUMAB
     Indication: Cervix carcinoma
     Dosage: 7TH CYCLE INTERVAL- 27TH DAY
     Route: 040
     Dates: start: 20240906

REACTIONS (9)
  - Off label use [Unknown]
  - Pulmonary mass [Unknown]
  - Hepatic lesion [Unknown]
  - Neoplasm [Unknown]
  - Pulmonary fibrosis [Unknown]
  - Pain [Unknown]
  - Blood pressure diastolic decreased [Unknown]
  - Heart rate increased [Unknown]
  - Death [Fatal]
